FAERS Safety Report 6207836-5 (Version None)
Quarter: 2009Q2

REPORT INFORMATION
  Report Type: 
  Country: None (occurrence: None)
  Receive Date: 20090522
  Receipt Date: 20090520
  Transmission Date: 20091009
  Serious: Yes (Hospitalization, Other)
  Sender: FDA-Public Use
  Company Number: ADE2009-0621

PATIENT
  Age: 60 Year
  Sex: Female

DRUGS (9)
  1. CEFTRIAXONE [Suspect]
     Indication: URINARY TRACT INFECTION
     Dosage: 2 GRAMS - DAILY - IV
     Route: 042
  2. ISOPHANE INSULIN [Concomitant]
  3. AMLODIPINE [Concomitant]
  4. PRAVASTATIN [Concomitant]
  5. ACETYLSALICYLIC ACID SRT [Concomitant]
  6. NITROGLYCERIN [Concomitant]
  7. AMITRIPTLINE HYDROCHLORIDE TAB [Concomitant]
  8. ESOMEPRAZOLE MAGNESIUM [Concomitant]
  9. CARBAMAZEPINE [Concomitant]

REACTIONS (1)
  - TOXIC ENCEPHALOPATHY [None]
